FAERS Safety Report 8408050-5 (Version None)
Quarter: 2012Q2

REPORT INFORMATION
  Report Type: 
  Country: None (occurrence: None)
  Receive Date: 20120604
  Receipt Date: 20120525
  Transmission Date: 20120825
  Serious: Yes (Hospitalization)
  Sender: FDA-Public Use
  Company Number: US-MERCK-1203USA00775

PATIENT
  Age: 73 Year
  Sex: Female

DRUGS (3)
  1. FOSAMAX [Suspect]
     Indication: OSTEOPOROSIS
     Route: 048
     Dates: start: 20010101, end: 20101201
  2. SYNTHROID [Concomitant]
     Route: 065
     Dates: start: 19750101
  3. MULTIVITAMIN [Concomitant]
     Route: 065
     Dates: start: 19960701

REACTIONS (6)
  - ADVERSE EVENT [None]
  - HYPERTENSION [None]
  - FEMUR FRACTURE [None]
  - LOW TURNOVER OSTEOPATHY [None]
  - CATARACT [None]
  - TOOTH DISORDER [None]
